FAERS Safety Report 17307551 (Version 1)
Quarter: 2020Q1

REPORT INFORMATION
  Report Type: Spontaneous
  Country: PL (occurrence: PL)
  Receive Date: 20200123
  Receipt Date: 20200123
  Transmission Date: 20200409
  Serious: Yes (Death, Life-Threatening, Other)
  Sender: FDA-Public Use
  Company Number: PL-ASTRAZENECA-2019SF35186

PATIENT
  Sex: Female
  Weight: 1.1 kg

DRUGS (2)
  1. IBUPROFEN. [Suspect]
     Active Substance: IBUPROFEN
     Route: 064
  2. ROSUVASTATIN. [Suspect]
     Active Substance: ROSUVASTATIN
     Route: 064

REACTIONS (7)
  - Neonatal respiratory distress [Fatal]
  - Neonatal cardiac failure [Fatal]
  - Neonatal asphyxia [Fatal]
  - Anuria [Unknown]
  - Foetal acidosis [Unknown]
  - Premature baby [Unknown]
  - Neonatal respiratory failure [Fatal]
